FAERS Safety Report 19959440 (Version 1)
Quarter: 2021Q4

REPORT INFORMATION
  Report Type: Spontaneous
  Country: US (occurrence: US)
  Receive Date: 20211012
  Receipt Date: 20211012
  Transmission Date: 20220303
  Serious: Yes (Hospitalization)
  Sender: FDA-Public Use
  Company Number: None

PATIENT
  Sex: Male

DRUGS (1)
  1. CAPECITABINE [Suspect]
     Active Substance: CAPECITABINE
     Indication: Colon cancer
     Dosage: TAKE 3 TABLETS BY MOUTH EVERY 12 HOURS FOR 7 DAYS ON AND 7 DAYS OFF
     Route: 048
     Dates: start: 20210309

REACTIONS (1)
  - Hospitalisation [None]
